FAERS Safety Report 8923091 (Version 1)
Quarter: 2012Q4

REPORT INFORMATION
  Report Type: Spontaneous
  Country: US (occurrence: None)
  Receive Date: 20121115
  Receipt Date: 20121115
  Transmission Date: 20130627
  Serious: Yes (Other)
  Sender: FDA-Public Use
  Company Number: None

PATIENT

DRUGS (4)
  1. DEXILANT [Suspect]
     Route: 048
     Dates: start: 20120313, end: 20121001
  2. DEXILANT [Suspect]
     Route: 048
     Dates: start: 20120313, end: 20121001
  3. LANSOPRAZOLE [Suspect]
     Route: 048
     Dates: start: 20090902, end: 20091203
  4. LANSOPRAZOLE [Suspect]
     Route: 048
     Dates: start: 20090902, end: 20091203

REACTIONS (5)
  - Nausea [None]
  - Vomiting [None]
  - Headache [None]
  - Gastritis [None]
  - Gastrooesophageal reflux disease [None]
